FAERS Safety Report 6345969-3 (Version None)
Quarter: 2009Q3

REPORT INFORMATION
  Report Type: 
  Country: None (occurrence: None)
  Receive Date: 20090909
  Receipt Date: 20090828
  Transmission Date: 20100115
  Serious: Yes (Hospitalization, Other)
  Sender: FDA-Public Use
  Company Number: US-NOVOPROD-290451

PATIENT
  Age: 39 Year
  Sex: Male
  Weight: 81.633 kg

DRUGS (1)
  1. NOVOLOG [Suspect]
     Indication: TYPE 1 DIABETES MELLITUS
     Dosage: UNKNOWN
     Route: 058

REACTIONS (8)
  - ASPIRATION [None]
  - BLOOD GLUCOSE INCREASED [None]
  - DEPRESSED LEVEL OF CONSCIOUSNESS [None]
  - HYPERSENSITIVITY [None]
  - INCOHERENT [None]
  - MALAISE [None]
  - RENAL IMPAIRMENT [None]
  - SKIN DISCOLOURATION [None]
